FAERS Safety Report 13136890 (Version 3)
Quarter: 2017Q1

REPORT INFORMATION
  Report Type: Spontaneous
  Country: US (occurrence: US)
  Receive Date: 20170123
  Receipt Date: 20170307
  Transmission Date: 20170428
  Serious: No
  Sender: FDA-Public Use
  Company Number: US-GLAXOSMITHKLINE-US2017007313

PATIENT
  Age: 60 Year
  Sex: Female

DRUGS (6)
  1. LORAZEPAM. [Concomitant]
     Active Substance: LORAZEPAM
  2. LOSARTAN. [Concomitant]
     Active Substance: LOSARTAN
  3. HYDROCODONE-ACETAMINOPHEN [Concomitant]
     Active Substance: ACETAMINOPHEN\HYDROCODONE
  4. ADVAIR DISKUS [Suspect]
     Active Substance: FLUTICASONE PROPIONATE\SALMETEROL XINAFOATE
     Indication: CHRONIC OBSTRUCTIVE PULMONARY DISEASE
     Dosage: 1 PUFF(S), BID
     Route: 055
     Dates: start: 20161130
  5. LASIX [Concomitant]
     Active Substance: FUROSEMIDE
  6. CITALOPRAM [Concomitant]
     Active Substance: CITALOPRAM HYDROBROMIDE

REACTIONS (9)
  - Dyspnoea [Recovering/Resolving]
  - Confusional state [Unknown]
  - Heart rate abnormal [Recovering/Resolving]
  - Cardiovascular symptom [Recovering/Resolving]
  - Drug ineffective [Recovering/Resolving]
  - Memory impairment [Unknown]
  - Device occlusion [Unknown]
  - Drug dose omission [Unknown]
  - Product quality issue [Unknown]

NARRATIVE: CASE EVENT DATE: 20170115
